FAERS Safety Report 20005817 (Version 1)
Quarter: 2021Q4

REPORT INFORMATION
  Report Type: Spontaneous
  Country: JP (occurrence: JP)
  Receive Date: 20211028
  Receipt Date: 20211028
  Transmission Date: 20220303
  Serious: Yes (Death)
  Sender: FDA-Public Use
  Company Number: 2021A723016

PATIENT
  Age: 27367 Day
  Sex: Male
  Weight: 43 kg

DRUGS (1)
  1. IMFINZI [Suspect]
     Active Substance: DURVALUMAB
     Indication: Non-small cell lung cancer
     Route: 042
     Dates: start: 20210617, end: 20210812

REACTIONS (1)
  - Radiation pneumonitis [Fatal]

NARRATIVE: CASE EVENT DATE: 20210813
